FAERS Safety Report 12941279 (Version 1)
Quarter: 2016Q4

REPORT INFORMATION
  Report Type: Spontaneous
  Country: US (occurrence: US)
  Receive Date: 20161115
  Receipt Date: 20161115
  Transmission Date: 20170207
  Serious: Yes (Hospitalization)
  Sender: FDA-Public Use
  Company Number: None

PATIENT
  Age: 56 Year
  Sex: Female
  Weight: 90.7 kg

DRUGS (11)
  1. CYMBALTA [Concomitant]
     Active Substance: DULOXETINE HYDROCHLORIDE
  2. PRINIVIL [Concomitant]
     Active Substance: LISINOPRIL
  3. XANAX [Concomitant]
     Active Substance: ALPRAZOLAM
  4. ATENOLOL. [Concomitant]
     Active Substance: ATENOLOL
  5. AROMASIN [Concomitant]
     Active Substance: EXEMESTANE
  6. PROTONIX [Concomitant]
     Active Substance: PANTOPRAZOLE SODIUM
  7. NEURONTIN [Concomitant]
     Active Substance: GABAPENTIN
  8. ROXICODONE [Concomitant]
     Active Substance: OXYCODONE HYDROCHLORIDE
  9. TOUJEO [Suspect]
     Active Substance: INSULIN GLARGINE
     Indication: DIABETES MELLITUS
     Route: 058
  10. ASA [Concomitant]
     Active Substance: ASPIRIN
  11. GLIMIPERIDE [Suspect]
     Active Substance: GLIMEPIRIDE
     Indication: DIABETES MELLITUS
     Route: 048

REACTIONS (3)
  - Hypoglycaemia [None]
  - Lip injury [None]
  - Hypophagia [None]

NARRATIVE: CASE EVENT DATE: 20160530
